FAERS Safety Report 8543461-9 (Version None)
Quarter: 2012Q3

REPORT INFORMATION
  Report Type: 
  Country: None (occurrence: None)
  Receive Date: 20120727
  Receipt Date: 20120724
  Transmission Date: 20120928
  Serious: Yes (Other)
  Sender: FDA-Public Use
  Company Number: PHHY2012AR058040

PATIENT
  Sex: Female

DRUGS (1)
  1. EXELON [Suspect]
     Indication: DEMENTIA ALZHEIMER'S TYPE
     Dosage: 2 DF (3 MG), DAILY
     Route: 048
     Dates: end: 20120628

REACTIONS (3)
  - BALANCE DISORDER [None]
  - RETROGRADE AMNESIA [None]
  - GAIT DISTURBANCE [None]
